FAERS Safety Report 7060737-5 (Version None)
Quarter: 2010Q4

REPORT INFORMATION
  Report Type: 
  Country: None (occurrence: None)
  Receive Date: 20101025
  Receipt Date: 20101018
  Transmission Date: 20110411
  Serious: Yes (Hospitalization)
  Sender: FDA-Public Use
  Company Number: US-US-EMD SERONO, INC.-7022944

PATIENT
  Sex: Female
  Weight: 77 kg

DRUGS (6)
  1. REBIF [Suspect]
     Indication: MULTIPLE SCLEROSIS
     Route: 058
     Dates: start: 20071025, end: 20101017
  2. FLOMAX [Concomitant]
     Indication: BLADDER DISORDER
  3. OXYBUTYNIN [Concomitant]
     Indication: BLADDER DISORDER
  4. BACLOFEN [Concomitant]
     Indication: MULTIPLE SCLEROSIS
  5. CITALOPRAM HYDROBROMIDE [Concomitant]
     Indication: DEPRESSION
  6. FLU SHOT [Concomitant]
     Dates: start: 20101013, end: 20101013

REACTIONS (6)
  - ASTHENIA [None]
  - CONTUSION [None]
  - FALL [None]
  - HYPOPHAGIA [None]
  - MUSCULAR WEAKNESS [None]
  - URINARY TRACT INFECTION [None]
